FAERS Safety Report 5580229-X (Version None)
Quarter: 2007Q4

REPORT INFORMATION
  Report Type: 
  Country: None (occurrence: None)
  Receive Date: 20071231
  Receipt Date: 20071231
  Transmission Date: 20080405
  Serious: Yes (Hospitalization)
  Sender: FDA-Public Use
  Company Number: None

PATIENT
  Age: 64 Year
  Sex: Female
  Weight: 86.2 kg

DRUGS (1)
  1. BYETTA [Suspect]
     Indication: TYPE 2 DIABETES MELLITUS
     Dosage: 5MCG BID SQ
     Route: 058
     Dates: start: 20070501, end: 20071225

REACTIONS (2)
  - PANCREATITIS [None]
  - RENAL FAILURE ACUTE [None]
